FAERS Safety Report 7641730-8 (Version None)
Quarter: 2011Q3

REPORT INFORMATION
  Report Type: 
  Country: None (occurrence: None)
  Receive Date: 20110722
  Receipt Date: 20110713
  Transmission Date: 20111222
  Serious: Yes (Hospitalization)
  Sender: FDA-Public Use
  Company Number: WAES 0904CHN00048

PATIENT
  Age: 58 Year
  Sex: Male

DRUGS (4)
  1. ACARBOSE [Concomitant]
  2. TAB KARIOUORABT *+) NIACIN [Suspect]
     Indication: HIGH DENSITY LIPOPROTEIN DECREASED
     Dosage: PO
     Route: 048
     Dates: start: 20071009, end: 20080409
  3. CLOPIDOGREL BISULFATE [Concomitant]
  4. INSULIN [Concomitant]

REACTIONS (4)
  - HEPATITIS [None]
  - NAUSEA [None]
  - EPISTAXIS [None]
  - VOMITING [None]
